FAERS Safety Report 5579038-7 (Version None)
Quarter: 2008Q1

REPORT INFORMATION
  Report Type: 
  Country: None (occurrence: None)
  Receive Date: 20080102
  Receipt Date: 20071221
  Transmission Date: 20080703
  Serious: Yes (Death, Other)
  Sender: FDA-Public Use
  Company Number: JP-BRISTOL-MYERS SQUIBB COMPANY-13999040

PATIENT
  Age: 46 Year
  Sex: Male

DRUGS (7)
  1. IFOMIDE [Suspect]
     Indication: TESTICULAR GERM CELL CANCER
     Dosage: DAILY DOSE 2 GRAM/D STARTED ON 02NOV98-27DEC98 AND 2.2 G/D ON 22MAR01-18APR01
     Dates: start: 19981102, end: 20010418
  2. ETOPOSIDE [Suspect]
     Indication: TESTICULAR GERM CELL CANCER
     Dosage: 150 MG/D UNKNOWN ROUTE STARTED ON 02NOV98-27DEC98 AND 50MG/D VIA ORAL ON 26JUN01-20MAR02
     Route: 048
     Dates: start: 19981102, end: 20020320
  3. CISPLATIN [Suspect]
     Indication: TESTICULAR GERM CELL CANCER
     Dosage: 30 MG/D FROM 02NOV98-27DEC98
     Dates: start: 19981102, end: 19981227
  4. CARBOPLATIN [Suspect]
     Indication: TESTICULAR GERM CELL CANCER
     Dosage: 350 MG/D FROM 26NOV99-05JAN00
     Dates: start: 19991126, end: 20000105
  5. PACLITAXEL [Suspect]
     Indication: TESTICULAR GERM CELL CANCER
     Dosage: 270 MG/D FROM 26NOV99-05JAN00, 270 MG/D FROM 22JUN00-08AUG00, 450MG/D FROM 22MAR01-18APR01
     Dates: start: 19991126, end: 20010418
  6. IRINOTECAN HCL [Suspect]
     Indication: TESTICULAR GERM CELL CANCER
     Dosage: 160 MG/D FROM 14JAN99-21MAR99, 200 MG/D ON 22MAY00-22MAY00
     Dates: start: 19990114, end: 20000522
  7. NEDAPLATIN [Suspect]
     Indication: TESTICULAR GERM CELL CANCER
     Dosage: 160MG/D ON 14JAN99-21MAR99,200MG/D 22MAY00-22MAY00,160MG/D 22JUN00-8AUG00,200MG/D 22MAR01-18APR01
     Dates: start: 19990114, end: 20010418

REACTIONS (2)
  - ACUTE MYELOID LEUKAEMIA [None]
  - DISSEMINATED INTRAVASCULAR COAGULATION [None]
